FAERS Safety Report 6494046-X (Version None)
Quarter: 2009Q4

REPORT INFORMATION
  Report Type: 
  Country: None (occurrence: None)
  Receive Date: 20091214
  Receipt Date: 20081215
  Transmission Date: 20100525
  Serious: No
  Sender: FDA-Public Use
  Company Number: US-BRISTOL-MYERS SQUIBB COMPANY-14443626

PATIENT
  Age: 14 Year
  Sex: Female

DRUGS (5)
  1. ABILIFY [Suspect]
     Indication: BIPOLAR DISORDER
  2. TEGRETOL [Suspect]
  3. CELEXA [Concomitant]
  4. WELLBUTRIN [Concomitant]
  5. LITHIUM [Concomitant]

REACTIONS (2)
  - DYSARTHRIA [None]
  - SPEECH DISORDER [None]
